FAERS Safety Report 12276164 (Version 1)
Quarter: 2016Q2

REPORT INFORMATION
  Report Type: Spontaneous
  Country: US (occurrence: US)
  Receive Date: 20160418
  Receipt Date: 20160418
  Transmission Date: 20160815
  Serious: Yes (Other)
  Sender: FDA-Public Use
  Company Number: US-BAYER-2016-069714

PATIENT
  Age: 13 Year
  Sex: Male

DRUGS (1)
  1. KOGENATE FS [Suspect]
     Active Substance: ANTIHEMOPHILIC FACTOR, HUMAN RECOMBINANT
     Indication: FACTOR VIII DEFICIENCY
     Dosage: 1500 UNITS, TIW AND DAILY PRN MINOR BLEED. INFUSE 2500 UNITS DAILY PRN MAJOR BLEED
     Route: 042
     Dates: start: 20131119

REACTIONS (1)
  - Haemorrhage [None]
